FAERS Safety Report 23605202 (Version 1)
Quarter: 2024Q1

REPORT INFORMATION
  Report Type: Spontaneous
  Country: CN (occurrence: CN)
  Receive Date: 20240307
  Receipt Date: 20240307
  Transmission Date: 20240409
  Serious: Yes (Hospitalization, Disabling)
  Sender: FDA-Public Use
  Company Number: CN-Bio-Thera Solutions, Ltd.-2154138

PATIENT
  Age: 32 Year
  Sex: Male
  Weight: 60 kg

DRUGS (6)
  1. BEVACIZUMAB [Suspect]
     Active Substance: BEVACIZUMAB
     Route: 041
     Dates: start: 20240129, end: 20240129
  2. SODIUM CHLORIDE [Concomitant]
     Active Substance: SODIUM CHLORIDE
     Route: 041
     Dates: start: 20240129, end: 20240129
  3. GEMCITABINE HYDROCHLORIDE [Suspect]
     Active Substance: GEMCITABINE HYDROCHLORIDE
     Dates: start: 20240129, end: 20240129
  4. SODIUM CHLORIDE [Concomitant]
     Active Substance: SODIUM CHLORIDE
     Dates: start: 20240129, end: 20240129
  5. CARBOPLATIN [Suspect]
     Active Substance: CARBOPLATIN
     Dates: start: 20240129, end: 20240129
  6. DEXTROSE [Concomitant]
     Active Substance: DEXTROSE\DEXTROSE MONOHYDRATE
     Dates: start: 20240129, end: 20240129

REACTIONS (5)
  - White blood cell count decreased [Recovered/Resolved]
  - Product use in unapproved indication [Unknown]
  - Chest discomfort [Unknown]
  - Platelet count decreased [Recovered/Resolved]
  - Neutrophil count decreased [Recovered/Resolved]

NARRATIVE: CASE EVENT DATE: 20240129
